FAERS Safety Report 5837017-6 (Version None)
Quarter: 2008Q3

REPORT INFORMATION
  Report Type: 
  Country: None (occurrence: None)
  Receive Date: 20080807
  Receipt Date: 20080724
  Transmission Date: 20090109
  Serious: Yes (Hospitalization)
  Sender: FDA-Public Use
  Company Number: US-ROCHE-569029

PATIENT
  Sex: Female

DRUGS (10)
  1. PEGASYS [Suspect]
     Route: 058
     Dates: start: 20080425, end: 20080509
  2. ELTROMBOPAG [Suspect]
     Indication: THROMBOCYTOPENIA
     Route: 048
     Dates: start: 20080404, end: 20080425
  3. BLINDED ELTROMBOPAG [Suspect]
     Indication: THROMBOCYTOPENIA
     Route: 048
     Dates: start: 20080425, end: 20080517
  4. TRIBAVIRIN [Suspect]
     Route: 048
     Dates: start: 20080425, end: 20080517
  5. METHADONE HYDROCHLORIDE [Concomitant]
     Dosage: TAKEN DAILY FOR THE PAST 20 YEARS
  6. OLMESARTAN MEDOXOMIL [Concomitant]
     Dates: start: 20070101
  7. FLUTICASONE PROPIONATE [Concomitant]
     Dates: start: 20080301
  8. ZOLPIDEM TARTRATE [Concomitant]
     Dates: start: 20080502
  9. QUININE [Concomitant]
     Dates: start: 20060101, end: 20080417
  10. NYQUIL [Concomitant]

REACTIONS (1)
  - HEPATITIS ALCOHOLIC [None]
